FAERS Safety Report 12154410 (Version 1)
Quarter: 2016Q1

REPORT INFORMATION
  Report Type: Spontaneous
  Country: US (occurrence: US)
  Receive Date: 20160307
  Receipt Date: 20160307
  Transmission Date: 20160526
  Serious: No
  Sender: FDA-Public Use
  Company Number: US-PFIZER INC-2016116341

PATIENT
  Age: 58 Year
  Sex: Female

DRUGS (4)
  1. RASUVO [Suspect]
     Active Substance: METHOTREXATE SODIUM
     Dosage: 17.5 MG, UNK
     Dates: start: 20141028, end: 20151008
  2. CELEBREX [Suspect]
     Active Substance: CELECOXIB
     Dosage: 200 MG, UNK
     Dates: start: 20140610, end: 20151105
  3. ENBREL [Suspect]
     Active Substance: ETANERCEPT
     Dosage: UNK
     Dates: start: 20140724, end: 20141028
  4. SIMPONI [Suspect]
     Active Substance: GOLIMUMAB
     Dosage: 50 MG, UNK
     Dates: start: 20141027, end: 20151008

REACTIONS (1)
  - Drug effect incomplete [Unknown]
